FAERS Safety Report 8308202-9 (Version None)
Quarter: 2012Q2

REPORT INFORMATION
  Report Type: 
  Country: None (occurrence: None)
  Receive Date: 20120420
  Receipt Date: 20120404
  Transmission Date: 20120825
  Serious: Yes (Other)
  Sender: FDA-Public Use
  Company Number: 2012EK000006

PATIENT

DRUGS (3)
  1. ALFENTANIL [Concomitant]
  2. CARDENE [Suspect]
     Indication: HYPERTENSION
     Dosage: 20 UG/KG;X1;IV
     Route: 042
  3. THIOPENTAL SODIUM [Concomitant]

REACTIONS (1)
  - VENTRICULAR EXTRASYSTOLES [None]
